FAERS Safety Report 8596541-6 (Version None)
Quarter: 2012Q3

REPORT INFORMATION
  Report Type: 
  Country: None (occurrence: None)
  Receive Date: 20120815
  Receipt Date: 20120810
  Transmission Date: 20120928
  Serious: Yes (Hospitalization, Other)
  Sender: FDA-Public Use
  Company Number: CA-AMGEN-CANSP2011047567

PATIENT
  Age: 74 Year
  Sex: Female
  Weight: 65.76 kg

DRUGS (16)
  1. NPLATE [Suspect]
     Indication: IDIOPATHIC THROMBOCYTOPENIC PURPURA
     Dosage: 60 MUG, QWK
     Route: 058
     Dates: start: 20110902
  2. SYNTHROID [Concomitant]
     Dosage: 50 MUG, QD
     Route: 048
  3. GLUCOPHAGE [Concomitant]
     Indication: DIABETES MELLITUS
     Dosage: 250 MG, QD
     Route: 048
  4. CALCIUM [Concomitant]
     Dosage: 500 MG, BID
     Route: 048
  5. SEROQUEL [Concomitant]
     Dosage: 37.5 MG, QD
     Route: 048
  6. EXELON [Concomitant]
     Dosage: 6 MG, BID
     Route: 048
  7. EBIXA [Concomitant]
     Dosage: 10 MG, BID
     Route: 048
  8. VITAMIN D [Concomitant]
     Dosage: 10000 IU, QWK
  9. SENOKOT [Concomitant]
     Dosage: 12 MG, QD
     Route: 048
  10. FLEET ENEMA                        /00129701/ [Concomitant]
     Dosage: UNK UNK, PRN
  11. TYLENOL (CAPLET) [Concomitant]
     Indication: PAIN
     Dosage: 500 MG, PRN
     Route: 048
  12. CELEXA [Concomitant]
     Dosage: 40 MG, QD
     Route: 048
  13. HALDOL [Concomitant]
     Indication: AGITATION
     Dosage: 0.5 MG, PRN
  14. CALCIUM CARBONATE [Concomitant]
  15. SEROQUEL [Concomitant]
     Dosage: 50 MG, BID
     Route: 048
  16. SORBITOL 50PC INJ [Concomitant]
     Dosage: 20 ML, QD

REACTIONS (1)
  - HYPOGLYCAEMIA [None]
